FAERS Safety Report 7263756-9 (Version None)
Quarter: 2011Q1

REPORT INFORMATION
  Report Type: 
  Country: None (occurrence: None)
  Receive Date: 20110130
  Receipt Date: 20101206
  Transmission Date: 20110831
  Serious: No
  Sender: FDA-Public Use
  Company Number: US-ABBOTT-10P-163-0689849-00

PATIENT
  Age: 34 Year
  Sex: Female

DRUGS (2)
  1. BC PILLS [Concomitant]
     Indication: PRODUCT USED FOR UNKNOWN INDICATION
  2. HUMIRA [Suspect]
     Indication: PSORIASIS
     Dosage: 80 MG 11/ 29 THEN 40 MG THEN 40 MG QOW
     Dates: start: 20101129

REACTIONS (4)
  - INJECTION SITE PAIN [None]
  - DEVICE MALFUNCTION [None]
  - HAEMORRHAGE [None]
  - INCORRECT DOSE ADMINISTERED [None]
